FAERS Safety Report 12936236 (Version 1)
Quarter: 2016Q4

REPORT INFORMATION
  Report Type: Spontaneous
  Country: US (occurrence: US)
  Receive Date: 20161112
  Receipt Date: 20161112
  Transmission Date: 20170207
  Serious: Yes (Other)
  Sender: FDA-Public Use
  Company Number: None

PATIENT
  Age: 14 Year
  Sex: Male
  Weight: 60.75 kg

DRUGS (3)
  1. CVS SEVERE CONGESTION RELIEF(ACETAMINOPHEN\GUAIFENESIN\PHENYLEPHRINE) [Suspect]
     Active Substance: ACETAMINOPHEN\GUAIFENESIN\PHENYLEPHRINE
     Indication: RHINORRHOEA
     Dosage: ?          QUANTITY:20 ML;?
     Route: 048
  2. CVS SEVERE CONGESTION RELIEF(ACETAMINOPHEN\GUAIFENESIN\PHENYLEPHRINE) [Suspect]
     Active Substance: ACETAMINOPHEN\GUAIFENESIN\PHENYLEPHRINE
     Indication: SINUSITIS
     Dosage: ?          QUANTITY:20 ML;?
     Route: 048
  3. VYVANSE [Concomitant]
     Active Substance: LISDEXAMFETAMINE DIMESYLATE

REACTIONS (4)
  - Rash [None]
  - Capillary fragility [None]
  - Feeling hot [None]
  - Urticaria [None]

NARRATIVE: CASE EVENT DATE: 20161111
